FAERS Safety Report 14756142 (Version 3)
Quarter: 2018Q4

REPORT INFORMATION
  Report Type: Other
  Country: HU (occurrence: HU)
  Receive Date: 20180413
  Receipt Date: 20181012
  Transmission Date: 20190204
  Serious: Yes (Other)
  Sender: FDA-Public Use
  Company Number: HU-ASTELLAS-2018US016918

PATIENT
  Age: 30 Year
  Sex: Male

DRUGS (2)
  1. MYCOPHENOLATE [Concomitant]
     Active Substance: MYCOPHENOLIC ACID
     Indication: HEART TRANSPLANT
     Dosage: UNK UNK, UNKNOWN FREQ.
     Route: 065
  2. PROGRAF [Suspect]
     Active Substance: TACROLIMUS\TACROLIMUS ANHYDROUS
     Indication: HEART TRANSPLANT
     Dosage: UNK UNK, UNKNOWN FREQ.
     Route: 065

REACTIONS (3)
  - Transplant rejection [Recovering/Resolving]
  - Transplant rejection [Recovered/Resolved]
  - Myocarditis [Recovered/Resolved]
